FAERS Safety Report 19228995 (Version 1)
Quarter: 2021Q2

REPORT INFORMATION
  Report Type: Spontaneous
  Country: US (occurrence: US)
  Receive Date: 20210506
  Receipt Date: 20210506
  Transmission Date: 20210717
  Serious: Yes (Other)
  Sender: FDA-Public Use
  Company Number: US-BAUSCH-BL-2021-015669

PATIENT
  Age: 35 Year
  Sex: Male

DRUGS (5)
  1. CONVALESCENT PLASMA [Concomitant]
     Active Substance: HUMAN PLASMA
     Indication: COVID-19 PNEUMONIA
     Route: 065
  2. HYDROCORTISONE. [Suspect]
     Active Substance: HYDROCORTISONE
     Indication: PRODUCT USE IN UNAPPROVED INDICATION
  3. TOCILIZUMAB. [Suspect]
     Active Substance: TOCILIZUMAB
     Indication: COVID-19 PNEUMONIA
     Route: 065
  4. NOREPINEPHRINE. [Concomitant]
     Active Substance: NOREPINEPHRINE
     Indication: PRODUCT USED FOR UNKNOWN INDICATION
  5. HYDROCORTISONE. [Suspect]
     Active Substance: HYDROCORTISONE
     Indication: COVID-19 PNEUMONIA
     Route: 065

REACTIONS (3)
  - Product use in unapproved indication [Unknown]
  - Cholecystitis [Unknown]
  - Candida infection [Unknown]
